FAERS Safety Report 5985156-1 (Version None)
Quarter: 2008Q4

REPORT INFORMATION
  Report Type: 
  Country: None (occurrence: None)
  Receive Date: 20081203
  Receipt Date: 20081121
  Transmission Date: 20090506
  Serious: Yes (Hospitalization)
  Sender: FDA-Public Use
  Company Number: 230415M08USA

PATIENT
  Age: 56 Year
  Sex: Female

DRUGS (6)
  1. REBIF [Suspect]
     Indication: MULTIPLE SCLEROSIS
     Dates: start: 20080615, end: 20081107
  2. COZAAR [Concomitant]
  3. HYDRALAZINE HCL [Concomitant]
  4. METOPROLOL / METOPROLOL /00376901/ [Concomitant]
  5. GLYBURIDE [Concomitant]
  6. INSULIN (INSULIN) [Concomitant]

REACTIONS (6)
  - BLISTER [None]
  - CELLULITIS [None]
  - INJECTION SITE HAEMATOMA [None]
  - INJECTION SITE PAIN [None]
  - INJECTION SITE REACTION [None]
  - SCAB [None]
